FAERS Safety Report 9506185 (Version 1)
Quarter: 2013Q1

REPORT INFORMATION
  Report Type: Spontaneous
  Country: US (occurrence: None)
  Receive Date: 20130304
  Receipt Date: 20130304
  Transmission Date: 20140127
  Serious: Yes (Other)
  Sender: FDA-Public Use
  Company Number: 1441846

PATIENT
  Age: 2 Month
  Sex: Male

DRUGS (3)
  1. PLEGISOL [Suspect]
     Indication: CARDIOVASCULAR EVENT PROPHYLAXIS
     Dates: start: 20121002
  2. POTASSIUM CHLORIDE [Concomitant]
  3. CARDIOPLEGIA [Concomitant]

REACTIONS (2)
  - Drug ineffective [None]
  - Product measured potency issue [None]
